FAERS Safety Report 20389583 (Version 4)
Quarter: 2022Q1

REPORT INFORMATION
  Report Type: Spontaneous
  Country: US (occurrence: US)
  Receive Date: 20220128
  Receipt Date: 20220318
  Transmission Date: 20220423
  Serious: No
  Sender: FDA-Public Use
  Company Number: US-SAGE-2022SAGE000005

PATIENT
  Age: 26 Year
  Sex: Female

DRUGS (8)
  1. ZULRESSO [Suspect]
     Active Substance: BREXANOLONE
     Indication: Perinatal depression
     Dosage: 30MCG/KG/HR AT A RATE OF 2 ML/HR
     Route: 042
     Dates: start: 20220118
  2. ZULRESSO [Suspect]
     Active Substance: BREXANOLONE
     Dosage: 60 MCG/KG/HOUR AT THE RATE OF 4.1 ML/HR. AT 22:58, DOSE WAS CHANGED TO 60.383 MCG/KG/HR.
     Route: 042
     Dates: start: 20220118, end: 20220118
  3. ZULRESSO [Suspect]
     Active Substance: BREXANOLONE
     Dosage: 60 MCG/KG/HR, NEW BAG
     Route: 042
     Dates: start: 20220119
  4. ZULRESSO [Suspect]
     Active Substance: BREXANOLONE
     Dosage: 90 MCG/KG/HR, NEW BAG
     Route: 042
     Dates: start: 20220120
  5. ZULRESSO [Suspect]
     Active Substance: BREXANOLONE
     Dosage: 90 MCG/KG/HR, NEW BAG
     Route: 042
     Dates: start: 20220120
  6. ZULRESSO [Suspect]
     Active Substance: BREXANOLONE
     Dosage: 90 MCG/KG/, NEW BAG
     Route: 042
     Dates: start: 20220121
  7. ZULRESSO [Suspect]
     Active Substance: BREXANOLONE
     Dosage: 60 MCG/KG/HR
     Route: 042
     Dates: start: 20220121
  8. ZULRESSO [Suspect]
     Active Substance: BREXANOLONE
     Dosage: 30 MCG/KG/HR
     Route: 042
     Dates: start: 20220121, end: 20220121

REACTIONS (2)
  - Product administration error [Unknown]
  - Device malfunction [Unknown]

NARRATIVE: CASE EVENT DATE: 20220118
